FAERS Safety Report 7122869-2 (Version None)
Quarter: 2010Q4

REPORT INFORMATION
  Report Type: 
  Country: None (occurrence: None)
  Receive Date: 20101124
  Receipt Date: 20101122
  Transmission Date: 20110411
  Serious: Yes (Hospitalization)
  Sender: FDA-Public Use
  Company Number: TR-ABBOTT-10P-161-0686922-00

PATIENT
  Age: 28 Year
  Sex: Female
  Weight: 60 kg

DRUGS (1)
  1. HUMIRA [Suspect]
     Indication: RHEUMATOID ARTHRITIS
     Route: 058
     Dates: end: 20100901

REACTIONS (1)
  - LYMPHADENOPATHY [None]
